FAERS Safety Report 4883573-4 (Version None)
Quarter: 2006Q1

REPORT INFORMATION
  Report Type: 
  Country: None (occurrence: None)
  Receive Date: 20060118
  Receipt Date: 20051220
  Transmission Date: 20060701
  Serious: Yes (Hospitalization, Disabling)
  Sender: FDA-Public Use
  Company Number: US-MERCK-0512USA03302

PATIENT
  Age: 39 Year
  Sex: Male
  Weight: 97 kg

DRUGS (9)
  1. VIOXX [Suspect]
     Indication: BACK PAIN
     Route: 048
     Dates: end: 20001201
  2. LOTREL [Concomitant]
     Route: 048
  3. LORTAB [Concomitant]
     Route: 048
  4. ASPIRIN [Concomitant]
     Route: 048
  5. NORCO [Concomitant]
     Route: 048
  6. SKELAXIN [Concomitant]
     Route: 048
  7. ELAVIL [Concomitant]
     Route: 048
  8. NIFEDIPINE [Concomitant]
     Route: 048
  9. HYDROCHLOROTHIAZIDE [Concomitant]
     Route: 048

REACTIONS (25)
  - ANXIETY [None]
  - ARTHRALGIA [None]
  - BACK DISORDER [None]
  - BACK INJURY [None]
  - BACK PAIN [None]
  - BLOOD PRESSURE INCREASED [None]
  - BRONCHITIS [None]
  - CARDIOVASCULAR DISORDER [None]
  - CEREBROVASCULAR ACCIDENT [None]
  - DEPRESSION [None]
  - DIARRHOEA [None]
  - ELECTROCARDIOGRAM ST-T CHANGE [None]
  - ERECTILE DYSFUNCTION [None]
  - EYE INJURY [None]
  - GALLBLADDER DISORDER [None]
  - GROIN PAIN [None]
  - HEADACHE [None]
  - HYPERTENSIVE CRISIS [None]
  - NON-CARDIAC CHEST PAIN [None]
  - PAIN IN EXTREMITY [None]
  - PULMONARY CONGESTION [None]
  - RENAL FAILURE [None]
  - SINUSITIS [None]
  - SUTURE RUPTURE [None]
  - VENTRICULAR HYPERTROPHY [None]
